FAERS Safety Report 5778059-9 (Version None)
Quarter: 2008Q2

REPORT INFORMATION
  Report Type: 
  Country: None (occurrence: None)
  Receive Date: 20080618
  Receipt Date: 20080618
  Transmission Date: 20081010
  Serious: Yes (Other)
  Sender: FDA-Public Use
  Company Number: None

PATIENT
  Sex: Female
  Weight: 68.9467 kg

DRUGS (3)
  1. SIMVASTATIN 40MG WALGREENS [Suspect]
     Indication: BLOOD CHOLESTEROL INCREASED
     Dates: start: 20080506, end: 20080603
  2. ZOCOR [Suspect]
  3. SIMVASTATIN [Suspect]

REACTIONS (7)
  - ABDOMINAL PAIN UPPER [None]
  - BACK PAIN [None]
  - HEADACHE [None]
  - MENTAL DISORDER [None]
  - MIDDLE INSOMNIA [None]
  - MYALGIA [None]
  - TINNITUS [None]
